FAERS Safety Report 5236203-6 (Version None)
Quarter: 2007Q1

REPORT INFORMATION
  Report Type: 
  Country: None (occurrence: None)
  Receive Date: 20070212
  Receipt Date: 20070129
  Transmission Date: 20070707
  Serious: Yes (Death)
  Sender: FDA-Public Use
  Company Number: GB-ELI_LILLY_AND_COMPANY-GB200701005594

PATIENT
  Age: 55 Year
  Sex: Male

DRUGS (3)
  1. CYMBALTA [Suspect]
     Indication: DEPRESSION
     Dosage: 60 MG, DAILY (1/D)
     Route: 065
  2. CIPRAMIL [Concomitant]
     Indication: DEPRESSION
     Dosage: 20 MG, DAILY (1/D)
     Route: 065
  3. CIPRAMIL [Concomitant]
     Dosage: 10 MG, DAILY (1/D)
     Route: 065

REACTIONS (1)
  - MYOCARDIAL INFARCTION [None]
